FAERS Safety Report 14242524 (Version 2)
Quarter: 2018Q4

REPORT INFORMATION
  Report Type: Spontaneous
  Country: ZA (occurrence: ZA)
  Receive Date: 20171201
  Receipt Date: 20181124
  Transmission Date: 20190204
  Serious: Yes (Congenital Anomaly)
  Sender: FDA-Public Use
  Company Number: PHHY2017ZA175058

PATIENT

DRUGS (1)
  1. AZARGA [Suspect]
     Active Substance: BRINZOLAMIDE\TIMOLOL MALEATE
     Indication: FOETAL EXPOSURE DURING PREGNANCY
     Dosage: (MATERNAL DOSE; UNSPECIFIED)
     Route: 064

REACTIONS (2)
  - Transposition of the great vessels [Unknown]
  - Foetal exposure during pregnancy [Unknown]
